FAERS Safety Report 4673998-4 (Version None)
Quarter: 2005Q2

REPORT INFORMATION
  Report Type: 
  Country: None (occurrence: None)
  Receive Date: 20050525
  Receipt Date: 20050509
  Transmission Date: 20051028
  Serious: Yes (Other)
  Sender: FDA-Public Use
  Company Number: 2005RL000054

PATIENT
  Age: 50 Year
  Sex: Female

DRUGS (9)
  1. OMACOR [Suspect]
     Dosage: 1 DF; QD; PO
     Route: 048
     Dates: start: 20050224
  2. LANTUS [Suspect]
     Indication: DIABETES MELLITUS
     Dosage: 28 IU; QD; SC
     Route: 058
     Dates: start: 20050224
  3. OPTIPEN INSULIN APPLICATOR (BEING QUERIED) [Concomitant]
     Indication: DIABETES MELLITUS
  4. PREDNISONE [Concomitant]
  5. DICLOFENAC [Concomitant]
  6. RAMIPRIL [Concomitant]
  7. SIMVASTATIN [Concomitant]
  8. GLICLAZIDE [Concomitant]
  9. ASPIRIN [Concomitant]

REACTIONS (3)
  - DYSMENORRHOEA [None]
  - ENDOMETRITIS [None]
  - VAGINAL HAEMORRHAGE [None]
